FAERS Safety Report 8555711-3 (Version None)
Quarter: 2012Q3

REPORT INFORMATION
  Report Type: 
  Country: None (occurrence: None)
  Receive Date: 20120801
  Receipt Date: 20120723
  Transmission Date: 20120928
  Serious: Yes (Life-Threatening, Hospitalization, Other)
  Sender: FDA-Public Use
  Company Number: US-009507513-1207USA010760

PATIENT

DRUGS (3)
  1. FUSIDIC ACID [Suspect]
  2. ZOCOR [Interacting]
     Route: 048
  3. FLOXACILLIN SODIUM [Concomitant]

REACTIONS (6)
  - CHROMATURIA [None]
  - MOBILITY DECREASED [None]
  - POTENTIATING DRUG INTERACTION [None]
  - PNEUMONIA [None]
  - MYOPATHY [None]
  - BLOOD CREATINE PHOSPHOKINASE INCREASED [None]
